FAERS Safety Report 15564513 (Version 3)
Quarter: 2022Q1

REPORT INFORMATION
  Report Type: Spontaneous
  Country: US (occurrence: US)
  Receive Date: 20181030
  Receipt Date: 20220302
  Transmission Date: 20220424
  Serious: Yes (Other)
  Sender: FDA-Public Use
  Company Number: US-TAKEDA-2018TUS030671

PATIENT
  Sex: Female
  Weight: 51.247 kg

DRUGS (15)
  1. ENTYVIO [Suspect]
     Active Substance: VEDOLIZUMAB
     Indication: Crohn^s disease
     Dosage: 300 MILLIGRAM
     Route: 042
     Dates: start: 20171214, end: 20180906
  2. ALLEGRA [Concomitant]
     Active Substance: FEXOFENADINE HYDROCHLORIDE
     Indication: Sinusitis
     Dosage: 180 MILLIGRAM, QD
  3. COLAZAL [Concomitant]
     Active Substance: BALSALAZIDE DISODIUM
     Indication: Crohn^s disease
     Dosage: UNK UNK, QD
     Route: 048
  4. MESALAMINE [Concomitant]
     Active Substance: MESALAMINE
     Indication: Crohn^s disease
     Dosage: UNK UNK, QD
     Route: 054
  5. PROTONIX                           /00661201/ [Concomitant]
     Indication: Gastrooesophageal reflux disease
     Dosage: 20 MILLIGRAM, BID
     Route: 048
  6. SINGULAIR [Concomitant]
     Active Substance: MONTELUKAST SODIUM
     Indication: Asthma
     Dosage: 10 MILLIGRAM
     Route: 048
  7. ARNUITY ELLIPTA [Concomitant]
     Active Substance: FLUTICASONE FUROATE
     Indication: Asthma
     Dosage: UNK UNK, QD
     Route: 048
  8. PROAIR                             /00139502/ [Concomitant]
     Indication: Asthma
     Dosage: UNK
     Route: 048
  9. FLONASE                            /00908302/ [Concomitant]
     Indication: Sinusitis
     Dosage: UNK UNK, QD
     Route: 045
  10. ALDACTONE                          /00006201/ [Concomitant]
     Indication: Rosacea
     Dosage: 50 MILLIGRAM, QD
     Route: 048
  11. BENADRYL                           /00000402/ [Concomitant]
     Indication: Premedication
     Dosage: 50 MILLIGRAM
     Route: 048
  12. ZYRTEC [Concomitant]
     Active Substance: CETIRIZINE HYDROCHLORIDE
     Indication: Premedication
     Dosage: UNK
     Route: 048
     Dates: start: 2018
  13. SOLU-MEDROL [Concomitant]
     Active Substance: METHYLPREDNISOLONE SODIUM SUCCINATE
     Indication: Premedication
     Dosage: UNK
     Route: 042
     Dates: start: 20171214
  14. TYLENOL                            /00020001/ [Concomitant]
     Indication: Premedication
     Dosage: UNK
     Route: 048
     Dates: start: 20171214
  15. PEPCID [Concomitant]
     Active Substance: FAMOTIDINE
     Indication: Premedication
     Dosage: UNK
     Route: 048
     Dates: start: 201809

REACTIONS (7)
  - Cerebellar ataxia [Unknown]
  - Anaphylactic reaction [Unknown]
  - Infusion related reaction [Unknown]
  - Thrombophlebitis [Unknown]
  - Cognitive disorder [Unknown]
  - Dysphagia [Unknown]
  - Speech disorder [Unknown]

NARRATIVE: CASE EVENT DATE: 20180101
